FAERS Safety Report 17655680 (Version 3)
Quarter: 2022Q3

REPORT INFORMATION
  Report Type: Spontaneous
  Country: US (occurrence: None)
  Receive Date: 20200410
  Receipt Date: 20220810
  Transmission Date: 20221026
  Serious: Yes (Other)
  Sender: FDA-Public Use
  Company Number: 2018SF48015

PATIENT
  Age: 898 Month
  Sex: Male
  Weight: 77.1 kg

DRUGS (61)
  1. NEXIUM [Suspect]
     Active Substance: ESOMEPRAZOLE MAGNESIUM
     Indication: Gallbladder disorder
     Dosage: FOR VARIOUS DATES AND YEARS
     Route: 048
     Dates: start: 2010, end: 2016
  2. NEXIUM [Suspect]
     Active Substance: ESOMEPRAZOLE MAGNESIUM
     Indication: Gallbladder disorder
     Route: 048
     Dates: start: 2010
  3. NEXIUM [Suspect]
     Active Substance: ESOMEPRAZOLE MAGNESIUM
     Indication: Gallbladder disorder
     Route: 048
     Dates: start: 20100928
  4. OMEPRAZOLE [Suspect]
     Active Substance: OMEPRAZOLE
     Indication: Gallbladder disorder
     Dosage: GENERIC
     Route: 065
  5. OMEPRAZOLE [Suspect]
     Active Substance: OMEPRAZOLE
     Indication: Gallbladder disorder
     Dosage: GENERIC
     Route: 065
     Dates: start: 2011
  6. DEXILANT [Suspect]
     Active Substance: DEXLANSOPRAZOLE
     Indication: Gallbladder disorder
     Dosage: FOR VARIOUS DATES AND YEARS
     Route: 065
     Dates: start: 2010, end: 2016
  7. DEXILANT [Suspect]
     Active Substance: DEXLANSOPRAZOLE
     Indication: Gallbladder disorder
     Route: 065
     Dates: start: 2010, end: 2016
  8. DEXILANT [Suspect]
     Active Substance: DEXLANSOPRAZOLE
     Indication: Gallbladder disorder
     Route: 048
     Dates: start: 20100920, end: 20101102
  9. CLOPIDOGREL [Concomitant]
     Active Substance: CLOPIDOGREL BISULFATE
     Indication: Coagulation factor
  10. PLAVIX [Concomitant]
     Active Substance: CLOPIDOGREL BISULFATE
     Indication: Coagulation factor
     Dates: start: 2010, end: 2014
  11. AZITHROMYCIN [Concomitant]
     Active Substance: AZITHROMYCIN
     Indication: Infection
  12. LOSARTAN [Concomitant]
     Active Substance: LOSARTAN
     Indication: Blood pressure abnormal
     Dates: start: 2017, end: 2019
  13. LEVOFLOXACIN [Concomitant]
     Active Substance: LEVOFLOXACIN
     Indication: Infection
     Dates: start: 2017
  14. CIPROFLOXACIN [Concomitant]
     Active Substance: CIPROFLOXACIN
     Indication: Infection
     Dates: start: 2018
  15. MINERALS NOS/ACEFYLLINE/BENCYCLANE FUMARATE/QUININE/GUAIACOL/ESSENTIAL [Concomitant]
     Indication: Malaria prophylaxis
     Dates: start: 2006, end: 2007
  16. AMLODIPINE [Concomitant]
     Active Substance: AMLODIPINE BESYLATE
     Indication: Blood pressure abnormal
     Dates: start: 2017, end: 2019
  17. PREDNISONE [Concomitant]
     Active Substance: PREDNISONE
     Dates: start: 2018
  18. ASPIRIN [Concomitant]
     Active Substance: ASPIRIN
     Indication: Coagulation factor
     Dates: start: 2000
  19. COENZYME Q10 [Concomitant]
     Active Substance: DIETARY SUPPLEMENT\UBIDECARENONE
     Indication: Energy increased
     Dates: start: 2009, end: 2015
  20. CRANBERRY CAPS [Concomitant]
     Indication: Energy increased
     Dates: start: 2017
  21. FLAXSEED [Concomitant]
     Active Substance: FLAX SEED
     Indication: Energy increased
     Dates: start: 2009
  22. MULTI-VITAMIN [Concomitant]
     Active Substance: .ALPHA.-TOCOPHEROL ACETATE, DL-\ASCORBIC ACID\CYANOCOBALAMIN\FLUORIDE ION\FOLIC ACID\NIACIN\PYRIDOXI
     Indication: Energy increased
     Dates: start: 2010
  23. VITAMIN C [Concomitant]
     Active Substance: ASCORBIC ACID
     Indication: Energy increased
     Dates: start: 2014, end: 2016
  24. VITAMIN D [Concomitant]
     Active Substance: VITAMIN D NOS
     Indication: Energy increased
     Dates: start: 2014, end: 2016
  25. HERBALS\TURMERIC [Concomitant]
     Active Substance: HERBALS\TURMERIC
     Indication: Energy increased
     Dates: start: 2019
  26. IRON [Concomitant]
     Active Substance: IRON
     Indication: Energy increased
     Dates: start: 2019
  27. ASCORBIC ACID\BIOTIN\CALCIUM PANTOTHENATE\CYANOCOBALAMIN\FOLIC ACID\NI [Concomitant]
     Active Substance: ASCORBIC ACID\BIOTIN\CALCIUM PANTOTHENATE\CYANOCOBALAMIN\FOLIC ACID\NIACINAMIDE\PYRIDOXINE HYDROCHLO
     Indication: Energy increased
     Dates: start: 2019
  28. PEPCID [Concomitant]
     Active Substance: FAMOTIDINE
     Dates: start: 2010
  29. PEPCID [Concomitant]
     Active Substance: FAMOTIDINE
     Dates: start: 2016
  30. FERRIC POLYSACCHARIDE COMPLEX [Concomitant]
     Active Substance: FERRIC POLYSACCHARIDE COMPLEX
     Dates: start: 2010
  31. FERRIC POLYSACCHARIDE COMPLEX [Concomitant]
     Active Substance: FERRIC POLYSACCHARIDE COMPLEX
     Dates: start: 2016
  32. ACETAMINOPHEN\DICHLORALPHENAZONE\ISOMETHEPTENE [Concomitant]
     Active Substance: ACETAMINOPHEN\DICHLORALPHENAZONE\ISOMETHEPTENE
  33. ACYCLOVIR [Concomitant]
     Active Substance: ACYCLOVIR
  34. TRAMADOL [Concomitant]
     Active Substance: TRAMADOL
  35. TYLENOL [Concomitant]
     Active Substance: ACETAMINOPHEN
  36. PERCOCET [Concomitant]
     Active Substance: ACETAMINOPHEN\OXYCODONE HYDROCHLORIDE
  37. VALIUM [Concomitant]
     Active Substance: DIAZEPAM
  38. METAXALONE [Concomitant]
     Active Substance: METAXALONE
  39. VIOXX [Concomitant]
     Active Substance: ROFECOXIB
  40. VIAGRA [Concomitant]
     Active Substance: SILDENAFIL CITRATE
  41. NIACIN [Concomitant]
     Active Substance: NIACIN
  42. PROSCAR [Concomitant]
     Active Substance: FINASTERIDE
  43. ARTHROTEC [Concomitant]
     Active Substance: DICLOFENAC SODIUM\MISOPROSTOL
  44. ZIPSOR [Concomitant]
     Active Substance: DICLOFENAC POTASSIUM
  45. ALEMTUZUMAB/DEXAMETHASONE/LENALIDOMIDE [Concomitant]
  46. REVLIMID [Concomitant]
     Active Substance: LENALIDOMIDE
  47. FERUMOXYTOL [Concomitant]
     Active Substance: FERUMOXYTOL
  48. THER/PROPH [Concomitant]
  49. DARZALEX [Concomitant]
     Active Substance: DARATUMUMAB
  50. IBUPROFEN AND DIPHENHYDRAMINE HCL [Concomitant]
     Active Substance: DIPHENHYDRAMINE HYDROCHLORIDE\IBUPROFEN
  51. DECADRON [Concomitant]
     Active Substance: DEXAMETHASONE
  52. MINERALS\VITAMINS [Concomitant]
     Active Substance: MINERALS\VITAMINS
  53. MORPHINE [Concomitant]
     Active Substance: MORPHINE
  54. MECLIZINE [Concomitant]
     Active Substance: MECLIZINE HYDROCHLORIDE
  55. NAPROSYN [Concomitant]
     Active Substance: NAPROXEN
  56. INDOCIN [Concomitant]
     Active Substance: INDOMETHACIN
  57. ASCORBIC ACID\BIOTIN\CALCIUM PANTOTHENATE\CYANOCOBALAMIN\FOLIC ACID\NI [Concomitant]
     Active Substance: ASCORBIC ACID\BIOTIN\CALCIUM PANTOTHENATE\CYANOCOBALAMIN\FOLIC ACID\NIACINAMIDE\PYRIDOXINE HYDROCHLO
  58. DEXAMETHASONE [Concomitant]
     Active Substance: DEXAMETHASONE
  59. CETIRIZINE [Concomitant]
     Active Substance: CETIRIZINE HYDROCHLORIDE
  60. SINGULAIR [Concomitant]
     Active Substance: MONTELUKAST SODIUM
  61. ROFECOXIB [Concomitant]
     Active Substance: ROFECOXIB

REACTIONS (6)
  - Chronic kidney disease [Not Recovered/Not Resolved]
  - Renal failure [Unknown]
  - Acute kidney injury [Unknown]
  - Nephrogenic anaemia [Unknown]
  - Tubulointerstitial nephritis [Unknown]
  - Rebound acid hypersecretion [Unknown]

NARRATIVE: CASE EVENT DATE: 20130601
